FAERS Safety Report 4524508-3 (Version None)
Quarter: 2005Q1

REPORT INFORMATION
  Report Type: 
  Country: None (occurrence: None)
  Receive Date: 20041117
  Receipt Date: 20031119
  Transmission Date: 20050727
  Serious: Yes (Other)
  Sender: FDA-Public Use
  Company Number: US-JNJFOC-20031104331

PATIENT
  Age: 86 Year
  Sex: Female

DRUGS (3)
  1. LEVAQUIN [Suspect]
     Indication: PNEUMONIA
     Dosage: SEE IMAGE
  2. FLAGYL [Concomitant]
  3. STEROID (CORTICOSTEROID NOS) [Concomitant]

REACTIONS (1)
  - CONVULSION [None]
